FAERS Safety Report 7180488-6 (Version None)
Quarter: 2010Q4

REPORT INFORMATION
  Report Type: 
  Country: None (occurrence: None)
  Receive Date: 20101221
  Receipt Date: 20101214
  Transmission Date: 20110411
  Serious: Yes (Hospitalization)
  Sender: FDA-Public Use
  Company Number: IT-CEPHALON-2010003244

PATIENT
  Sex: Female
  Weight: 70 kg

DRUGS (2)
  1. TREANDA [Suspect]
     Indication: MANTLE CELL LYMPHOMA
     Dates: start: 20100529, end: 20100530
  2. OFATUMUMAB [Suspect]
     Indication: MANTLE CELL LYMPHOMA
     Dates: start: 20100528, end: 20100528

REACTIONS (1)
  - ATRIAL FIBRILLATION [None]
